FAERS Safety Report 5892841-9 (Version None)
Quarter: 2008Q3

REPORT INFORMATION
  Report Type: 
  Country: None (occurrence: None)
  Receive Date: 20080923
  Receipt Date: 20080912
  Transmission Date: 20090109
  Serious: Yes (Hospitalization)
  Sender: FDA-Public Use
  Company Number: IE-AMGEN-US295549

PATIENT
  Sex: Female
  Weight: 81 kg

DRUGS (4)
  1. ENBREL [Suspect]
     Indication: DRUG USE FOR UNKNOWN INDICATION
     Route: 058
     Dates: start: 20080703
  2. FOLIC ACID [Concomitant]
     Indication: BLOOD FOLATE DECREASED
     Dosage: 5 MG (FREQUENCY UNKNOWN)
     Route: 048
     Dates: start: 20080104
  3. METHOTREXATE [Concomitant]
     Indication: RHEUMATOID ARTHRITIS
     Route: 048
     Dates: start: 20080103
  4. ACETAMINOPHEN [Concomitant]
     Indication: RHEUMATOID ARTHRITIS
     Dosage: 2  TABLETS A DAY AS REQUIRED
     Route: 048

REACTIONS (1)
  - GASTRITIS [None]
